FAERS Safety Report 7371281-X (Version None)
Quarter: 2011Q1

REPORT INFORMATION
  Report Type: 
  Country: None (occurrence: None)
  Receive Date: 20110324
  Receipt Date: 20110314
  Transmission Date: 20110831
  Serious: No
  Sender: FDA-Public Use
  Company Number: US-JNJFOC-20110207782

PATIENT
  Sex: Female
  Weight: 72.58 kg

DRUGS (7)
  1. CALCIUM [Concomitant]
     Indication: PROPHYLAXIS
     Route: 065
  2. MULTIPLE VITAMINS [Concomitant]
     Indication: PROPHYLAXIS
     Route: 065
  3. CYMBALTA [Concomitant]
     Indication: FIBROMYALGIA
     Route: 048
  4. FENTANYL [Suspect]
     Indication: PAIN
     Route: 062
  5. CHOLESTEROL MEDICATION [Concomitant]
     Indication: BLOOD CHOLESTEROL INCREASED
     Route: 065
  6. LYRICA [Concomitant]
     Indication: FIBROMYALGIA
     Route: 048
  7. UNKNOWN MEDICATION [Concomitant]
     Indication: HYPERTENSION
     Route: 065

REACTIONS (3)
  - WRONG TECHNIQUE IN DRUG USAGE PROCESS [None]
  - THERAPEUTIC RESPONSE DECREASED [None]
  - PAIN [None]
